FAERS Safety Report 17220090 (Version 1)
Quarter: 2019Q4

REPORT INFORMATION
  Report Type: Spontaneous
  Country: US (occurrence: US)
  Receive Date: 20191231
  Receipt Date: 20191231
  Transmission Date: 20200122
  Serious: No
  Sender: FDA-Public Use
  Company Number: US-SA-2019SA361923

PATIENT
  Sex: Male
  Weight: 84 kg

DRUGS (4)
  1. PLAVIX [Suspect]
     Active Substance: CLOPIDOGREL BISULFATE
     Route: 065
  2. ELIQUIS [Concomitant]
     Active Substance: APIXABAN
  3. FAMOTIDINE. [Concomitant]
     Active Substance: FAMOTIDINE
  4. ELIQUIS [Suspect]
     Active Substance: APIXABAN
     Indication: ATRIAL FIBRILLATION
     Dosage: UNK UNK, BID
     Route: 048
     Dates: start: 20191101

REACTIONS (2)
  - Headache [Unknown]
  - Blood pressure increased [Unknown]
